FAERS Safety Report 9872998 (Version 3)
Quarter: 2014Q1

REPORT INFORMATION
  Report Type: Other
  Country: US (occurrence: US)
  Receive Date: 20140206
  Receipt Date: 20140312
  Transmission Date: 20141002
  Serious: No
  Sender: FDA-Public Use
  Company Number: US-ACORDA-ACO_30101_2012

PATIENT
  Age: 48 Year
  Sex: Female
  Weight: 57.6 kg

DRUGS (8)
  1. AMPYRA [Suspect]
     Indication: GAIT DISTURBANCE
     Dosage: 10 MG, BID
     Route: 048
     Dates: start: 201201, end: 2012
  2. AMPYRA [Suspect]
     Indication: ASTHENIA
     Dosage: 10 MG, QD IN THE MORNING
     Route: 048
     Dates: start: 2012
  3. TYSABRI [Concomitant]
     Indication: MULTIPLE SCLEROSIS
     Dosage: UNK, MONTHLY
     Route: 051
  4. BENICAR [Concomitant]
     Indication: HYPERTENSION
     Dosage: 40/25, QD
     Route: 048
  5. AMPICILLIN [Concomitant]
     Indication: PRODUCT USED FOR UNKNOWN INDICATION
     Dosage: UNK
  6. DETROL [Concomitant]
     Indication: INCONTINENCE
     Dosage: 0.5 MG, NIGHTLY, QD
     Route: 048
  7. DDAVP                              /00361901/ [Concomitant]
     Indication: INCONTINENCE
     Dosage: 0.01 UNK, NIGHTLY, UNK
     Route: 048
  8. MACROBID [Concomitant]
     Indication: PRODUCT USED FOR UNKNOWN INDICATION
     Dosage: UNK

REACTIONS (11)
  - Dysstasia [Unknown]
  - Myalgia [Unknown]
  - Energy increased [Recovering/Resolving]
  - Therapeutic response unexpected [Unknown]
  - Insomnia [Recovered/Resolved]
  - Gait disturbance [Recovered/Resolved]
  - Inappropriate schedule of drug administration [Unknown]
  - Multiple sclerosis relapse [Recovering/Resolving]
  - Back pain [Unknown]
  - Urinary tract infection [Unknown]
  - Drug ineffective [Unknown]
